FAERS Safety Report 22523765 (Version 1)
Quarter: 2023Q2

REPORT INFORMATION
  Report Type: Spontaneous
  Country: US (occurrence: US)
  Receive Date: 20230606
  Receipt Date: 20230606
  Transmission Date: 20230722
  Serious: No
  Sender: FDA-Public Use
  Company Number: US-AUROBINDO-AUR-APL-2022-036260

PATIENT
  Age: 61 Year
  Sex: Female
  Weight: 72.562 kg

DRUGS (1)
  1. VENLAFAXINE HYDROCHLORIDE [Suspect]
     Active Substance: VENLAFAXINE HYDROCHLORIDE
     Indication: Depression
     Dosage: UNK (03 PILLS A DAY)
     Route: 065
     Dates: start: 20220827

REACTIONS (2)
  - Drug ineffective [Unknown]
  - Product quality issue [Unknown]
